FAERS Safety Report 5497922-X (Version None)
Quarter: 2007Q4

REPORT INFORMATION
  Report Type: 
  Country: None (occurrence: None)
  Receive Date: 20071025
  Receipt Date: 20071015
  Transmission Date: 20080405
  Serious: Yes (Other)
  Sender: FDA-Public Use
  Company Number: US-PFIZER INC-2006143423

PATIENT
  Sex: Male

DRUGS (2)
  1. BEXTRA [Suspect]
     Indication: PLEURISY
     Route: 048
  2. BEXTRA [Suspect]
     Indication: PAIN

REACTIONS (1)
  - STEVENS-JOHNSON SYNDROME [None]
